FAERS Safety Report 7085109-9 (Version None)
Quarter: 2010Q4

REPORT INFORMATION
  Report Type: 
  Country: None (occurrence: None)
  Receive Date: 20101105
  Receipt Date: 20101026
  Transmission Date: 20110411
  Serious: Yes (Other)
  Sender: FDA-Public Use
  Company Number: JP-JNJFOC-20100502465

PATIENT
  Sex: Female
  Weight: 51 kg

DRUGS (39)
  1. DOXORUBICIN HYDROCHOLORIDE (DOXIL) [Suspect]
     Indication: OVARIAN CANCER RECURRENT
     Dosage: CYCLE 6
     Route: 042
  2. DOXORUBICIN HYDROCHOLORIDE (DOXIL) [Suspect]
     Dosage: CYCLE 5
     Route: 042
  3. DOXORUBICIN HYDROCHOLORIDE (DOXIL) [Suspect]
     Dosage: CYCLE 4
     Route: 042
  4. DOXORUBICIN HYDROCHOLORIDE (DOXIL) [Suspect]
     Dosage: CYCLE 3
     Route: 042
  5. DOXORUBICIN HYDROCHOLORIDE (DOXIL) [Suspect]
     Dosage: CYCLE 2
     Route: 042
  6. DOXORUBICIN HYDROCHOLORIDE (DOXIL) [Suspect]
     Dosage: CYCLE 1
     Route: 042
  7. KYTRIL [Concomitant]
     Indication: PROPHYLAXIS
     Route: 042
  8. KYTRIL [Concomitant]
     Route: 042
  9. KYTRIL [Concomitant]
     Route: 042
  10. KYTRIL [Concomitant]
     Route: 042
  11. KYTRIL [Concomitant]
     Route: 042
  12. DEXART [Concomitant]
     Indication: PROPHYLAXIS
     Route: 042
  13. DEXART [Concomitant]
     Route: 042
  14. DEXART [Concomitant]
     Route: 042
  15. DEXART [Concomitant]
     Route: 042
  16. DEXART [Concomitant]
     Route: 042
  17. DEXART [Concomitant]
     Route: 042
  18. ZOMETA [Concomitant]
     Indication: PROPHYLAXIS
     Route: 042
  19. ZOMETA [Concomitant]
     Route: 042
  20. ZOMETA [Concomitant]
     Route: 042
  21. ZOMETA [Concomitant]
     Route: 042
  22. ZOMETA [Concomitant]
     Route: 042
  23. UREPEARL [Concomitant]
     Indication: PALMAR-PLANTAR ERYTHRODYSAESTHESIA SYNDROME
     Route: 061
  24. UREPEARL [Concomitant]
     Route: 061
  25. UREPEARL [Concomitant]
     Indication: PROPHYLAXIS
     Route: 061
  26. UREPEARL [Concomitant]
     Route: 061
  27. CELESTAMINE TAB [Concomitant]
     Indication: PROPHYLAXIS
     Route: 048
  28. CELESTAMINE TAB [Concomitant]
     Route: 048
  29. HACHIAZULE [Concomitant]
     Indication: PROPHYLAXIS
     Route: 049
  30. UREPEARL [Concomitant]
     Route: 061
  31. UREPEARL [Concomitant]
     Route: 061
  32. UREPEARL [Concomitant]
     Route: 061
  33. UREPEARL [Concomitant]
     Route: 061
  34. CHLOR-TRIMETON [Concomitant]
     Indication: PROPHYLAXIS
     Route: 042
  35. CHLOR-TRIMETON [Concomitant]
     Route: 042
  36. CHLOR-TRIMETON [Concomitant]
     Route: 042
  37. CHLOR-TRIMETON [Concomitant]
     Route: 042
  38. CHLOR-TRIMETON [Concomitant]
     Route: 042
  39. CHLOR-TRIMETON [Concomitant]
     Route: 042

REACTIONS (10)
  - DIARRHOEA [None]
  - DYSGEUSIA [None]
  - HYPERSENSITIVITY [None]
  - HYPERTENSION [None]
  - HYPOAESTHESIA [None]
  - METASTASES TO LYMPH NODES [None]
  - NEUTROPHIL COUNT DECREASED [None]
  - PAIN [None]
  - PALMAR-PLANTAR ERYTHRODYSAESTHESIA SYNDROME [None]
  - STOMATITIS [None]
